FAERS Safety Report 13475472 (Version 1)
Quarter: 2017Q2

REPORT INFORMATION
  Report Type: Spontaneous
  Country: US (occurrence: US)
  Receive Date: 20170424
  Receipt Date: 20170424
  Transmission Date: 20170830
  Serious: No
  Sender: FDA-Public Use
  Company Number: US-009507513-1704USA002325

PATIENT
  Age: 25 Year
  Sex: Female
  Weight: 65.76 kg

DRUGS (3)
  1. ZARONTIN [Concomitant]
     Active Substance: ETHOSUXIMIDE
  2. KEPPRA [Concomitant]
     Active Substance: LEVETIRACETAM
  3. NUVARING [Suspect]
     Active Substance: ETHINYL ESTRADIOL\ETONOGESTREL
     Indication: CONTRACEPTION
     Dosage: 3 WEEKS IN, 1 WEEK OUT (QM)
     Route: 067
     Dates: start: 201703

REACTIONS (1)
  - Abnormal withdrawal bleeding [Unknown]

NARRATIVE: CASE EVENT DATE: 20170403
